FAERS Safety Report 19814559 (Version 1)
Quarter: 2021Q3

REPORT INFORMATION
  Report Type: Spontaneous
  Country: US (occurrence: US)
  Receive Date: 20210908
  Receipt Date: 20210908
  Transmission Date: 20211014
  Serious: No
  Sender: FDA-Public Use
  Company Number: None

PATIENT
  Age: 35 Year
  Sex: Female
  Weight: 107.05 kg

DRUGS (12)
  1. CLORODIRECT [Concomitant]
  2. BUPRENORPHINE ?NALOXONE 8?20 MG TABLETS [Suspect]
     Active Substance: BUPRENORPHINE\NALOXONE
     Indication: DRUG USE DISORDER
     Dosage: ?          QUANTITY:2 MG MILLIGRAM(S);?
     Route: 060
     Dates: start: 20210827
  3. DULOXETINE. [Concomitant]
     Active Substance: DULOXETINE
  4. FEROSUL [Concomitant]
     Active Substance: FERROUS SULFATE
  5. LEVOTHYROXINE. [Concomitant]
     Active Substance: LEVOTHYROXINE
  6. NAPROXEN. [Concomitant]
     Active Substance: NAPROXEN
  7. BACLOFEN. [Concomitant]
     Active Substance: BACLOFEN
  8. GABAPENTIN. [Concomitant]
     Active Substance: GABAPENTIN
  9. PROAIR HFA [Concomitant]
     Active Substance: ALBUTEROL SULFATE
  10. NORINTHDRONE [Concomitant]
  11. OMEPRAZOLE. [Concomitant]
     Active Substance: OMEPRAZOLE
  12. CYANOCOBALAMIN. [Concomitant]
     Active Substance: CYANOCOBALAMIN

REACTIONS (7)
  - Rash [None]
  - Nausea [None]
  - Hypoaesthesia oral [None]
  - Oral mucosal eruption [None]
  - Wrong technique in product usage process [None]
  - Incorrect route of product administration [None]
  - Vomiting [None]

NARRATIVE: CASE EVENT DATE: 20210827
